FAERS Safety Report 11828173 (Version 1)
Quarter: 2015Q4

REPORT INFORMATION
  Report Type: Spontaneous
  Country: DE (occurrence: DE)
  Receive Date: 20151211
  Receipt Date: 20151211
  Transmission Date: 20160305
  Serious: Yes (Hospitalization)
  Sender: FDA-Public Use
  Company Number: DE-ASTRAZENECA-2015SF20634

PATIENT
  Age: 26 Year
  Sex: Female

DRUGS (8)
  1. SEROQUEL [Suspect]
     Active Substance: QUETIAPINE FUMARATE
     Route: 048
     Dates: start: 20141209
  2. TAVOR [Suspect]
     Active Substance: LORAZEPAM
     Route: 048
     Dates: start: 20141214, end: 20141215
  3. HALDOL [Concomitant]
     Active Substance: HALOPERIDOL
     Route: 048
     Dates: start: 20141208
  4. DIAZEPAM. [Suspect]
     Active Substance: DIAZEPAM
     Route: 048
     Dates: start: 20141209
  5. DIAZEPAM. [Suspect]
     Active Substance: DIAZEPAM
     Dosage: 15-20 MG DAILY
     Route: 048
     Dates: start: 20141210, end: 20141213
  6. DIAZEPAM. [Suspect]
     Active Substance: DIAZEPAM
     Route: 048
     Dates: start: 20141208
  7. HALDOL [Concomitant]
     Active Substance: HALOPERIDOL
     Route: 048
     Dates: start: 20141209
  8. SEROQUEL [Suspect]
     Active Substance: QUETIAPINE FUMARATE
     Route: 048
     Dates: start: 20141210, end: 20141213

REACTIONS (1)
  - Altered state of consciousness [Recovered/Resolved]

NARRATIVE: CASE EVENT DATE: 20141215
